FAERS Safety Report 13575033 (Version 1)
Quarter: 2017Q2

REPORT INFORMATION
  Report Type: Spontaneous
  Country: US (occurrence: US)
  Receive Date: 20170523
  Receipt Date: 20170523
  Transmission Date: 20170830
  Serious: Yes (Other)
  Sender: FDA-Public Use
  Company Number: PHHY2017US069338

PATIENT
  Age: 50 Year
  Sex: Male

DRUGS (2)
  1. MEROPENEM. [Suspect]
     Active Substance: MEROPENEM
     Indication: SKIN ULCER
  2. MEROPENEM. [Suspect]
     Active Substance: MEROPENEM
     Indication: ABSCESS
     Route: 065

REACTIONS (1)
  - Hypersensitivity vasculitis [Recovering/Resolving]
